FAERS Safety Report 7070145-9 (Version None)
Quarter: 2010Q4

REPORT INFORMATION
  Report Type: 
  Country: None (occurrence: None)
  Receive Date: 20101028
  Receipt Date: 20100909
  Transmission Date: 20110411
  Serious: No
  Sender: FDA-Public Use
  Company Number: US-WYE-H17472910

PATIENT
  Age: 44 Year
  Sex: Female
  Weight: 61.29 kg

DRUGS (3)
  1. ADVIL [Suspect]
     Indication: PYREXIA
     Route: 048
     Dates: start: 20100904, end: 20100909
  2. ADVIL [Concomitant]
  3. CIPROFLOXACIN [Concomitant]

REACTIONS (2)
  - DRUG EFFECT DECREASED [None]
  - VOMITING [None]
